FAERS Safety Report 16215322 (Version 1)
Quarter: 2019Q2

REPORT INFORMATION
  Report Type: Spontaneous
  Country: NL (occurrence: NL)
  Receive Date: 20190419
  Receipt Date: 20190419
  Transmission Date: 20190711
  Serious: Yes (Death, Other)
  Sender: FDA-Public Use
  Company Number: NL-SA-2019SA107199

PATIENT
  Age: 76 Year
  Sex: Male
  Weight: 65 kg

DRUGS (16)
  1. HYDROCORTISON ACETATE [Concomitant]
     Route: 003
  2. RIFAMPICIN [Suspect]
     Active Substance: RIFAMPIN
     Indication: STAPHYLOCOCCAL BACTERAEMIA
     Dosage: 600 MG Q12H
     Route: 048
     Dates: start: 20190314, end: 20190326
  3. DEXAMETHASON [DEXAMETHASONE] [Concomitant]
     Active Substance: DEXAMETHASONE
     Dosage: 4 MG QD
     Route: 048
  4. TAVEGYL [Concomitant]
     Active Substance: CLEMASTINE FUMARATE
     Dosage: 1 MG PRN
     Route: 048
  5. MORFINE [Concomitant]
     Active Substance: MORPHINE
     Dosage: 10 MG Q12H
     Route: 048
  6. METOCLOPRAMIDE. [Concomitant]
     Active Substance: METOCLOPRAMIDE
     Dosage: 10 MG
     Route: 048
  7. LOPERAMIDE [Concomitant]
     Active Substance: LOPERAMIDE
     Dosage: 2 MG, PRN
     Route: 048
  8. ENALAPRILMALEAAT SANDOZ [Concomitant]
     Dosage: 5 MG, QD
     Route: 048
  9. PARACETAMOL [Concomitant]
     Active Substance: ACETAMINOPHEN
     Dosage: 1000 MG, Q6H
  10. FLUCLOXACILLINE [FLUCLOXACILLIN] [Concomitant]
  11. ORAMORPH [Concomitant]
     Active Substance: MORPHINE SULFATE
     Dosage: 1 DF
     Route: 048
  12. NADROPARINE [Concomitant]
     Active Substance: NADROPARIN
     Dosage: 0.3 ML, QD
     Route: 058
  13. PRIMPERIL [Concomitant]
     Dosage: 10 MG, PRN
     Route: 054
  14. METFORMINE [METFORMIN] [Concomitant]
     Active Substance: METFORMIN HYDROCHLORIDE
     Dosage: 1 DF, Q8H
     Route: 048
  15. SIMVASTATINE [Concomitant]
     Active Substance: SIMVASTATIN
     Dosage: 40 MG QD
     Route: 048
  16. TEMAZEPAM. [Concomitant]
     Active Substance: TEMAZEPAM
     Dosage: 2 MG
     Route: 048

REACTIONS (1)
  - Acute kidney injury [Fatal]

NARRATIVE: CASE EVENT DATE: 20190324
